FAERS Safety Report 12484095 (Version 1)
Quarter: 2016Q2

REPORT INFORMATION
  Report Type: Spontaneous
  Country: DK (occurrence: DK)
  Receive Date: 20160621
  Receipt Date: 20160621
  Transmission Date: 20160815
  Serious: Yes (Hospitalization, Disabling)
  Sender: FDA-Public Use
  Company Number: DK-WATSON-2016-12628

PATIENT
  Age: 82 Year
  Sex: Female

DRUGS (11)
  1. CLORIOCARD [Concomitant]
     Indication: PRODUCT USED FOR UNKNOWN INDICATION
     Dosage: UNK, UNKNOWN
     Route: 065
  2. RIMACTAN                           /00146901/ [Concomitant]
     Active Substance: RIFAMPIN
     Indication: LUNG INFECTION
     Dosage: UNK UNK, UNKNOWN
     Route: 065
     Dates: start: 20160316, end: 20160524
  3. MYAMBUTOL [Concomitant]
     Active Substance: ETHAMBUTOL HYDROCHLORIDE
     Indication: MYCOBACTERIUM AVIUM COMPLEX INFECTION
     Dosage: UNK UNK, UNKNOWN
     Route: 065
     Dates: end: 20160524
  4. KLACID                             /00984601/ [Interacting]
     Active Substance: CLARITHROMYCIN
     Indication: MYCOBACTERIUM AVIUM COMPLEX INFECTION
     Dosage: 500 MG, BID (STRENGTH: 500 MG)
     Route: 048
     Dates: start: 20160316, end: 20160524
  5. AMLODIPIN                          /00972401/ [Concomitant]
     Active Substance: AMLODIPINE BESYLATE
     Indication: PRODUCT USED FOR UNKNOWN INDICATION
     Dosage: UNK UNK, UNKNOWN
     Route: 065
     Dates: end: 20160524
  6. ENALAPRIL [Concomitant]
     Active Substance: ENALAPRIL
     Indication: PRODUCT USED FOR UNKNOWN INDICATION
     Dosage: UNK UNK, UNKNOWN
     Route: 065
     Dates: end: 20160525
  7. SINEMET [Concomitant]
     Active Substance: CARBIDOPA\LEVODOPA
     Indication: PARKINSON^S DISEASE
     Dosage: UNK, UNKNOWN
     Route: 065
  8. SIMVASTATIN ACTAVIS [Suspect]
     Active Substance: SIMVASTATIN
     Indication: HYPERCHOLESTEROLAEMIA
     Dosage: 40 MG, DAILY (STRENGTH: 40 MG)
     Route: 048
     Dates: end: 20160523
  9. AKINETON [Concomitant]
     Active Substance: BIPERIDEN HYDROCHLORIDE
     Indication: PARKINSON^S DISEASE
     Dosage: UNK, UNKNOWN
     Route: 065
  10. CETIRIZINE [Concomitant]
     Active Substance: CETIRIZINE HYDROCHLORIDE
     Indication: PRODUCT USED FOR UNKNOWN INDICATION
     Dosage: UNK, UNKNOWN
     Route: 065
  11. COMBAR [Concomitant]
     Indication: PRODUCT USED FOR UNKNOWN INDICATION
     Dosage: UNK, UNKNOWN
     Route: 065

REACTIONS (8)
  - Blood creatinine increased [Recovering/Resolving]
  - Myoglobin blood increased [Unknown]
  - Myalgia [Unknown]
  - Acute kidney injury [Recovering/Resolving]
  - Drug interaction [Unknown]
  - Rhabdomyolysis [Recovering/Resolving]
  - Muscular weakness [Unknown]
  - Blood creatine phosphokinase increased [Recovering/Resolving]

NARRATIVE: CASE EVENT DATE: 201605
